FAERS Safety Report 5709492-9 (Version None)
Quarter: 2008Q2

REPORT INFORMATION
  Report Type: 
  Country: None (occurrence: None)
  Receive Date: 20080417
  Receipt Date: 20080417
  Transmission Date: 20081010
  Serious: Yes (Other)
  Sender: FDA-Public Use
  Company Number: None

PATIENT
  Sex: Female
  Weight: 65.318 kg

DRUGS (7)
  1. RECLAST [Suspect]
     Indication: OSTEOPOROSIS
     Dosage: 5MG ONCE IV
     Route: 042
     Dates: start: 20080314
  2. LISINOPRIL AND HYDROCHLOROTHIAZIDE [Concomitant]
  3. LIPITOR [Concomitant]
  4. ASPIRIN [Concomitant]
  5. M.V.I. [Concomitant]
  6. NORVASC [Concomitant]
  7. CALCIUM [Concomitant]

REACTIONS (2)
  - BONE PAIN [None]
  - INFLUENZA LIKE ILLNESS [None]
